FAERS Safety Report 4644419-2 (Version None)
Quarter: 2005Q2

REPORT INFORMATION
  Report Type: 
  Country: None (occurrence: None)
  Receive Date: 20050331
  Receipt Date: 20041206
  Transmission Date: 20051028
  Serious: No
  Sender: FDA-Public Use
  Company Number: 04P-163-0282502-00

PATIENT
  Age: 35 Year
  Sex: Female
  Weight: 79.3795 kg

DRUGS (9)
  1. HUMIRA [Suspect]
     Indication: RHEUMATOID ARTHRITIS
     Dosage: 40 MG, 1 IN 15 D, SUBCUTANEOUS
     Route: 058
     Dates: start: 20040714
  2. ALENDRONATE SODIUM [Concomitant]
  3. FOLIC ACID [Concomitant]
  4. PARACETAMOL [Concomitant]
  5. IBUPROFEN [Concomitant]
  6. HYDROCODONE BITARTRATE [Concomitant]
  7. NAPROXEN [Concomitant]
  8. CALCIUM GLUCONATE [Concomitant]
  9. VITA FORTE [Concomitant]

REACTIONS (2)
  - ARTHRALGIA [None]
  - ARTHRITIS [None]
